FAERS Safety Report 8387455-5 (Version None)
Quarter: 2012Q2

REPORT INFORMATION
  Report Type: 
  Country: None (occurrence: None)
  Receive Date: 20120525
  Receipt Date: 20120519
  Transmission Date: 20120825
  Serious: Yes (Death)
  Sender: FDA-Public Use
  Company Number: PHHY2012SD006226

PATIENT
  Sex: Male
  Weight: 60 kg

DRUGS (1)
  1. GLEEVEC [Suspect]
     Indication: CHRONIC MYELOID LEUKAEMIA
     Dosage: 400 MG, DAILY
     Route: 048
     Dates: start: 20090928, end: 20110703

REACTIONS (2)
  - REFRACTORY ANAEMIA [None]
  - PLATELET COUNT DECREASED [None]
